FAERS Safety Report 8515429-X (Version None)
Quarter: 2012Q3

REPORT INFORMATION
  Report Type: 
  Country: None (occurrence: None)
  Receive Date: 20120717
  Receipt Date: 20120706
  Transmission Date: 20120928
  Serious: Yes (Death, Hospitalization, Other)
  Sender: FDA-Public Use
  Company Number: US-BAYER-2012-032268

PATIENT
  Age: 75 Year
  Sex: Male
  Weight: 70 kg

DRUGS (3)
  1. NEXAVAR [Suspect]
     Indication: HEPATIC NEOPLASM MALIGNANT
     Dosage: 100 MG, QD
     Dates: start: 20120215
  2. NEXAVAR [Suspect]
     Dosage: 200 MG, QD
     Dates: end: 20120323
  3. NEXAVAR [Suspect]
     Dosage: 200 MG, BID
     Dates: start: 20120312, end: 20120312

REACTIONS (10)
  - GENERAL PHYSICAL HEALTH DETERIORATION [None]
  - HAEMODYNAMIC INSTABILITY [None]
  - ABDOMINAL DISCOMFORT [None]
  - RENAL FAILURE ACUTE [None]
  - SHOCK HAEMORRHAGIC [None]
  - TUMOUR HAEMORRHAGE [None]
  - HEPATIC HAEMATOMA [None]
  - PERITONEAL HAEMORRHAGE [None]
  - HEPATIC FAILURE [None]
  - HYPOTENSION [None]
